FAERS Safety Report 15300095 (Version 1)
Quarter: 2018Q3

REPORT INFORMATION
  Report Type: Spontaneous
  Country: US (occurrence: US)
  Receive Date: 20180808
  Receipt Date: 20180808
  Transmission Date: 20181010
  Serious: Yes (Other)
  Sender: FDA-Public Use
  Company Number: None

PATIENT
  Age: 64 Year
  Sex: Female
  Weight: 56.7 kg

DRUGS (14)
  1. URSODIOL. [Concomitant]
     Active Substance: URSODIOL
  2. TACROLIMUS. [Concomitant]
     Active Substance: TACROLIMUS
  3. DILTIAZEM. [Concomitant]
     Active Substance: DILTIAZEM
  4. CREON?12 [Concomitant]
  5. SODIUM POLYSTRENE SULFONATE SUSP. [Suspect]
     Active Substance: SODIUM POLYSTYRENE SULFONATE
     Indication: CHRONIC KIDNEY DISEASE
     Dosage: EXTRA DOSES IF POTASSIUM LEVEL ABOVE 5.1
     Dates: start: 20180607, end: 20180706
  6. CARVEDILOL. [Concomitant]
     Active Substance: CARVEDILOL
  7. FEBOXUSTAT [Concomitant]
  8. DOCUSATE [Concomitant]
     Active Substance: DOCUSATE
  9. SODIUM BICARBONATE. [Concomitant]
     Active Substance: SODIUM BICARBONATE
  10. CLONIDINE. [Concomitant]
     Active Substance: CLONIDINE
  11. FUROSEMIDE. [Concomitant]
     Active Substance: FUROSEMIDE
  12. SODIUM POLYSTRENE SULFONATE SUSP. [Suspect]
     Active Substance: SODIUM POLYSTYRENE SULFONATE
     Indication: HYPERKALAEMIA
     Dosage: 60 ML ALTERNATING WITH 30 ML DAILY ORAL
     Route: 048
     Dates: start: 20180505, end: 20180705
  13. PRAVASTATIN. [Concomitant]
     Active Substance: PRAVASTATIN
  14. FERROUS SULFATE. [Concomitant]
     Active Substance: FERROUS SULFATE

REACTIONS (4)
  - Blood potassium increased [None]
  - Product taste abnormal [None]
  - Diarrhoea [None]
  - Product substitution issue [None]

NARRATIVE: CASE EVENT DATE: 20180705
